FAERS Safety Report 5066750-1 (Version None)
Quarter: 2006Q3

REPORT INFORMATION
  Report Type: 
  Country: None (occurrence: None)
  Receive Date: 20060801
  Receipt Date: 20020722
  Transmission Date: 20061208
  Serious: Yes (Other)
  Sender: FDA-Public Use
  Company Number: US-ROCHE-317861

PATIENT
  Age: 59 Year
  Sex: Female

DRUGS (4)
  1. XELODA [Suspect]
     Route: 048
     Dates: start: 20020615
  2. XELODA [Suspect]
     Route: 048
  3. AVASTIN [Concomitant]
  4. TAXOTERE [Concomitant]

REACTIONS (8)
  - APHASIA [None]
  - ASCITES [None]
  - FATIGUE [None]
  - HEADACHE [None]
  - INADEQUATE DIET [None]
  - OVERDOSE [None]
  - PARKINSON'S DISEASE [None]
  - VOMITING [None]
